FAERS Safety Report 20797784 (Version 1)
Quarter: 2022Q2

REPORT INFORMATION
  Report Type: Spontaneous
  Country: US (occurrence: None)
  Receive Date: 20220506
  Receipt Date: 20220506
  Transmission Date: 20220721
  Serious: No
  Sender: FDA-Public Use
  Company Number: None

PATIENT
  Sex: Female

DRUGS (1)
  1. OPSUMIT [Suspect]
     Active Substance: MACITENTAN
     Indication: Pulmonary arterial hypertension
     Dosage: 10 MG QD PO?
     Route: 048
     Dates: start: 20201014

REACTIONS (6)
  - Abdominal pain upper [None]
  - Pain in extremity [None]
  - Pain in jaw [None]
  - Oropharyngeal pain [None]
  - Rash [None]
  - Gastrointestinal inflammation [None]
